FAERS Safety Report 5902617-1 (Version None)
Quarter: 2008Q3

REPORT INFORMATION
  Report Type: 
  Country: None (occurrence: None)
  Receive Date: 20080926
  Receipt Date: 20080911
  Transmission Date: 20090109
  Serious: Yes (Death)
  Sender: FDA-Public Use
  Company Number: 2008BI022774

PATIENT
  Age: 67 Year
  Sex: Female

DRUGS (1)
  1. TYSABRI [Suspect]
     Indication: MULTIPLE SCLEROSIS
     Dosage: 300 MG; QM; IV
     Route: 042
     Dates: start: 20070103, end: 20070810

REACTIONS (10)
  - BEDRIDDEN [None]
  - CARDIO-RESPIRATORY ARREST [None]
  - DEHYDRATION [None]
  - DISEASE PROGRESSION [None]
  - MUSCLE SPASMS [None]
  - NAUSEA [None]
  - RELAPSING-REMITTING MULTIPLE SCLEROSIS [None]
  - VOMITING [None]
  - WEIGHT DECREASED [None]
  - WHEELCHAIR USER [None]
